FAERS Safety Report 21505673 (Version 2)
Quarter: 2022Q4

REPORT INFORMATION
  Report Type: Report from Study
  Country: IT (occurrence: None)
  Receive Date: 20221026
  Receipt Date: 20221124
  Transmission Date: 20230112
  Serious: Yes (Hospitalization)
  Sender: FDA-Public Use
  Company Number: IT-ROCHE-3043205

PATIENT
  Age: 74 Year
  Sex: Male
  Weight: 80 kg

DRUGS (9)
  1. ALECTINIB [Suspect]
     Active Substance: ALECTINIB
     Indication: Metastatic neoplasm
     Dosage: DATE OF MOST RECENT DOSE 600 MG OF STUDY DRUG PRIOR TO AE  26/FEB/2022?DATE OF MOST RECENT DOSE 600
     Route: 048
     Dates: start: 20211018
  2. TRIAZOLAM [Concomitant]
     Active Substance: TRIAZOLAM
     Indication: Insomnia
     Dates: start: 2019
  3. LOPERAMIDE [Concomitant]
     Active Substance: LOPERAMIDE
     Dosage: DOSE 3 CAPSULE, DIARRHEA PROPHYLAXIS
     Route: 048
     Dates: start: 20211018
  4. ASPIRIN [Concomitant]
     Active Substance: ASPIRIN
     Dosage: THROMBOSIS PREVENTION
     Route: 048
     Dates: start: 20211019
  5. OLMESARTAN MEDOXOMIL [Concomitant]
     Active Substance: OLMESARTAN MEDOXOMIL
     Indication: Hypertension
     Dates: start: 20211115
  6. METHYLPREDNISOLONE [Concomitant]
     Active Substance: METHYLPREDNISOLONE
     Indication: Dyspnoea
     Route: 042
     Dates: start: 20220304, end: 20220309
  7. PANTOPRAZOLE [Concomitant]
     Active Substance: PANTOPRAZOLE
     Indication: Prophylaxis
     Dosage: GASTRIC PROTECTION
     Route: 042
     Dates: start: 20220304, end: 20220309
  8. DEXAMETHASONE [Concomitant]
     Active Substance: DEXAMETHASONE
     Dates: start: 20220310, end: 20220327
  9. DEXAMETHASONE [Concomitant]
     Active Substance: DEXAMETHASONE
     Dates: start: 20220328, end: 20220330

REACTIONS (1)
  - Pneumonia [Recovered/Resolved]

NARRATIVE: CASE EVENT DATE: 20220226
